FAERS Safety Report 10342218 (Version 1)
Quarter: 2014Q3

REPORT INFORMATION
  Report Type: Spontaneous
  Country: IN (occurrence: IN)
  Receive Date: 20140725
  Receipt Date: 20140725
  Transmission Date: 20150326
  Serious: Yes (Other)
  Sender: FDA-Public Use
  Company Number: IN-JNJFOC-20140711161

PATIENT
  Age: 16 Month
  Sex: Female

DRUGS (2)
  1. SODIUM VALPROATE [Interacting]
     Active Substance: VALPROATE SODIUM
     Indication: CONVULSION NEONATAL
     Route: 065
  2. TOPIRAMATE. [Suspect]
     Active Substance: TOPIRAMATE
     Indication: CONVULSION NEONATAL
     Route: 048

REACTIONS (4)
  - Drug interaction [Unknown]
  - Epilepsy [Not Recovered/Not Resolved]
  - Metabolic syndrome [Recovered/Resolved]
  - Off label use [Unknown]
